FAERS Safety Report 4398970-3 (Version None)
Quarter: 2004Q3

REPORT INFORMATION
  Report Type: 
  Country: None (occurrence: None)
  Receive Date: 20040712
  Receipt Date: 20040629
  Transmission Date: 20050211
  Serious: Yes (Hospitalization)
  Sender: FDA-Public Use
  Company Number: US-JNJFOC-20040700233

PATIENT
  Age: 86 Year
  Sex: Female
  Weight: 61.2356 kg

DRUGS (12)
  1. INFLIXIMAB (INFLIXIMAB, RECOMBINANT LYOPHILIZED POWDER) [Suspect]
     Indication: RHEUMATOID ARTHRITIS
     Dosage: INTRAVENOUS
     Route: 042
     Dates: start: 20010407
  2. PREDNISONE [Concomitant]
  3. THYROID TAB [Concomitant]
  4. DETROL [Concomitant]
  5. ARAVA [Concomitant]
  6. VIOXX [Concomitant]
  7. COLCHICINE [Concomitant]
  8. SALAGEN (FILOCARPINE HYDROCHLORIDE) [Concomitant]
  9. PROTONIX [Concomitant]
  10. ACTONEL [Concomitant]
  11. VITAMIN E [Concomitant]
  12. CALCIUM + D (CALCIUM) [Concomitant]

REACTIONS (4)
  - ACUTE MYOCARDIAL INFARCTION [None]
  - ATRIAL FIBRILLATION [None]
  - CORONARY ARTERY OCCLUSION [None]
  - PNEUMONIA [None]
